FAERS Safety Report 4817651-2 (Version None)
Quarter: 2005Q3

REPORT INFORMATION
  Report Type: 
  Country: None (occurrence: None)
  Receive Date: 20050929
  Receipt Date: 20050613
  Transmission Date: 20060218
  Serious: No
  Sender: FDA-Public Use
  Company Number: 04P-163-0270521-00

PATIENT
  Age: 74 Year
  Sex: Female
  Weight: 68.0396 kg

DRUGS (10)
  1. HUMIRA [Suspect]
     Indication: RHEUMATOID ARTHRITIS
     Dosage: 40 MG, 1 IN 2 WK, SUBCUTANEOUS
     Route: 058
     Dates: start: 20040729
  2. LEVOTHYROXINE SODIUM [Concomitant]
  3. METHYLPREDNISOLONE [Concomitant]
  4. METHOTREXATE SODIUM [Concomitant]
  5. LEUCOVORIN CALCIUM [Concomitant]
  6. LISINOPRIL [Concomitant]
  7. ESOMEPRAZOLE [Concomitant]
  8. LATANOPROST [Concomitant]
  9. ASAGAN [Concomitant]
  10. SERTRALINE HYDROCHLORIDE [Concomitant]

REACTIONS (4)
  - DIARRHOEA [None]
  - DRUG EFFECT DECREASED [None]
  - INJECTION SITE BRUISING [None]
  - INJECTION SITE HAEMORRHAGE [None]
